FAERS Safety Report 5722739-8 (Version None)
Quarter: 2008Q2

REPORT INFORMATION
  Report Type: 
  Country: None (occurrence: None)
  Receive Date: 20080425
  Receipt Date: 20080422
  Transmission Date: 20081010
  Serious: Yes (Hospitalization)
  Sender: FDA-Public Use
  Company Number: 2008SP005391

PATIENT
  Age: 52 Year
  Sex: Male
  Weight: 87.27 kg

DRUGS (8)
  1. TEMOZOLOMIDE [Suspect]
     Indication: GLIOBLASTOMA MULTIFORME
     Dosage: 75 MG/M2; PO
     Route: 048
     Dates: start: 20080218, end: 20080307
  2. TEMOZOLOMIDE [Suspect]
  3. TEMOZOLOMIDE [Suspect]
  4. PENTAMIDINE [Suspect]
     Indication: ANTIFUNGAL PROPHYLAXIS
     Dosage: QM
  5. NEURONTIN [Concomitant]
  6. PEPCID [Concomitant]
  7. ZOFRAN [Concomitant]
  8. TYLENOL [Concomitant]

REACTIONS (26)
  - ABASIA [None]
  - ASTHENIA [None]
  - CHEST X-RAY ABNORMAL [None]
  - CHOLELITHIASIS [None]
  - CONFUSIONAL STATE [None]
  - DISORIENTATION [None]
  - DRUG INTOLERANCE [None]
  - DYSSTASIA [None]
  - FATIGUE [None]
  - GAIT DISTURBANCE [None]
  - HEART RATE INCREASED [None]
  - HEPATITIS [None]
  - HYPOTENSION [None]
  - INTERVERTEBRAL DISC DEGENERATION [None]
  - LOSS OF CONSCIOUSNESS [None]
  - MENTAL STATUS CHANGES [None]
  - MUSCULAR WEAKNESS [None]
  - NUCLEAR MAGNETIC RESONANCE IMAGING ABNORMAL [None]
  - PANCREATITIS ACUTE [None]
  - RADIATION NECROSIS [None]
  - RASH [None]
  - RESPIRATORY DISORDER [None]
  - SEPSIS [None]
  - SOMNOLENCE [None]
  - STAPHYLOCOCCAL INFECTION [None]
  - TREMOR [None]
